FAERS Safety Report 17488802 (Version 1)
Quarter: 2020Q1

REPORT INFORMATION
  Report Type: Spontaneous
  Country: US (occurrence: US)
  Receive Date: 20200220
  Receipt Date: 20200220
  Transmission Date: 20200409
  Serious: No
  Sender: FDA-Public Use
  Company Number: None

PATIENT
  Age: 65 Year
  Sex: Male
  Weight: 97 kg

DRUGS (1)
  1. VARENICLINE (VARENICLINE TAB STARTING MONTH PACK, 53) [Suspect]
     Active Substance: VARENICLINE
     Dates: start: 20190313, end: 20190412

REACTIONS (1)
  - Suicidal ideation [None]

NARRATIVE: CASE EVENT DATE: 20190709
